FAERS Safety Report 9264243 (Version 2)
Quarter: 2013Q2

REPORT INFORMATION
  Report Type: Spontaneous
  Country: US (occurrence: US)
  Receive Date: 20130430
  Receipt Date: 20130503
  Transmission Date: 20140414
  Serious: No
  Sender: FDA-Public Use
  Company Number: US-ASTRAZENECA-2013SE25761

PATIENT
  Age: 59 Year
  Sex: Male
  Weight: 94.3 kg

DRUGS (4)
  1. METOPROLOL TARTRATE [Suspect]
     Indication: BLOOD PRESSURE ABNORMAL
     Route: 048
     Dates: start: 20130204, end: 201303
  2. PULMICORT FLEXHALER [Suspect]
     Indication: ASTHMA
     Dosage: 180 MCG TWO PUFFS BID
     Route: 055
     Dates: start: 20130210
  3. ALBUTEROL NEBULIZER [Concomitant]
     Indication: ASTHMA
     Dosage: PRN
     Route: 055
     Dates: start: 20130204
  4. XOPANEX [Concomitant]
     Indication: ASTHMA
     Dosage: PRN
     Route: 055
     Dates: start: 20130204

REACTIONS (5)
  - Drug hypersensitivity [Unknown]
  - Asthma [Recovered/Resolved]
  - Hypotension [Recovered/Resolved]
  - Drug effect decreased [Not Recovered/Not Resolved]
  - Intentional drug misuse [Unknown]
